FAERS Safety Report 5152856-5 (Version None)
Quarter: 2006Q4

REPORT INFORMATION
  Report Type: 
  Country: None (occurrence: None)
  Receive Date: 20060918
  Receipt Date: 20051011
  Transmission Date: 20070319
  Serious: Yes (Other)
  Sender: FDA-Public Use
  Company Number: PHEH2005US11356

PATIENT
  Age: 63 Year
  Sex: Female

DRUGS (2)
  1. FEMARA [Suspect]
     Indication: BREAST CANCER
     Dosage: SEE IMAGE
     Route: 048
     Dates: start: 20040101
  2. FEMARA [Suspect]
     Indication: BREAST CANCER
     Dosage: SEE IMAGE
     Route: 048
     Dates: start: 20051007

REACTIONS (4)
  - DEPRESSION [None]
  - FEELING ABNORMAL [None]
  - MENTAL IMPAIRMENT [None]
  - MENTAL STATUS CHANGES [None]
